FAERS Safety Report 18747997 (Version 1)
Quarter: 2021Q1

REPORT INFORMATION
  Report Type: Spontaneous
  Country: US (occurrence: US)
  Receive Date: 20210116
  Receipt Date: 20210116
  Transmission Date: 20210419
  Serious: Yes (Life-Threatening, Hospitalization, Other)
  Sender: FDA-Public Use
  Company Number: US-AUROBINDO-AUR-APL-2021-001474

PATIENT
  Age: 62 Year
  Sex: Female

DRUGS (2)
  1. LIRAGLUTIDE [Concomitant]
     Active Substance: LIRAGLUTIDE
     Indication: PRODUCT USED FOR UNKNOWN INDICATION
     Dosage: 1.2 MILLIGRAM, ONCE A DAY
     Route: 065
  2. METFORMIN [Suspect]
     Active Substance: METFORMIN HYDROCHLORIDE
     Indication: PRODUCT USED FOR UNKNOWN INDICATION
     Dosage: 1 GRAM, TWO TIMES A DAY
     Route: 065

REACTIONS (7)
  - Acute kidney injury [Recovering/Resolving]
  - Enterococcal infection [Unknown]
  - Toxicity to various agents [Recovering/Resolving]
  - Myxoedema coma [Unknown]
  - Lactic acidosis [Recovering/Resolving]
  - Aerococcus urinae infection [Unknown]
  - Urosepsis [Unknown]
